FAERS Safety Report 19451464 (Version 1)
Quarter: 2021Q2

REPORT INFORMATION
  Report Type: Spontaneous
  Country: US (occurrence: US)
  Receive Date: 20210622
  Receipt Date: 20210622
  Transmission Date: 20210717
  Serious: No
  Sender: FDA-Public Use
  Company Number: None

PATIENT
  Age: 20 Month
  Sex: Female

DRUGS (7)
  1. PULMOZYME [Suspect]
     Active Substance: DORNASE ALFA
     Indication: CYSTIC FIBROSIS
     Route: 055
     Dates: start: 20201020
  2. ONDANSETRON [Concomitant]
     Active Substance: ONDANSETRON
  3. PREDNISOLONE. [Concomitant]
     Active Substance: PREDNISOLONE
  4. AMOXICILLIN. [Concomitant]
     Active Substance: AMOXICILLIN
  5. AUVI?Q [Concomitant]
     Active Substance: EPINEPHRINE
  6. CREON [Concomitant]
     Active Substance: PANCRELIPASE AMYLASE\PANCRELIPASE LIPASE\PANCRELIPASE PROTEASE
  7. CYPROHEPTAD [Concomitant]

REACTIONS (2)
  - Infective pulmonary exacerbation of cystic fibrosis [None]
  - Viral infection [None]

NARRATIVE: CASE EVENT DATE: 20210523
